FAERS Safety Report 11014632 (Version 2)
Quarter: 2015Q2

REPORT INFORMATION
  Report Type: Spontaneous
  Country: US (occurrence: US)
  Receive Date: 20150412
  Receipt Date: 20150525
  Transmission Date: 20150821
  Serious: No
  Sender: FDA-Public Use
  Company Number: US-JNJFOC-20131108163

PATIENT
  Age: 24 Year
  Sex: Female
  Weight: 117.94 kg

DRUGS (9)
  1. METHOTREXATE [Concomitant]
     Active Substance: METHOTREXATE
     Indication: RHEUMATOID ARTHRITIS
     Route: 065
     Dates: start: 2011
  2. FOLIC ACID. [Concomitant]
     Active Substance: FOLIC ACID
     Indication: LIVER DISORDER
     Route: 048
     Dates: start: 2011
  3. IRON PILL [Concomitant]
     Active Substance: IRON
     Indication: ANAEMIA
     Route: 048
     Dates: start: 2011
  4. LEVOTHYROXINE [Concomitant]
     Active Substance: LEVOTHYROXINE
     Indication: HYPOTHYROIDISM
     Route: 048
     Dates: start: 200801
  5. SEASONIQUE [Concomitant]
     Active Substance: ETHINYL ESTRADIOL\LEVONORGESTREL
     Indication: DRUG THERAPY
     Route: 048
     Dates: start: 2007
  6. TRAMADOL [Suspect]
     Active Substance: TRAMADOL
     Indication: PAIN
     Dosage: 1 TO 2 TABLETS 50 MG AS NEEDED
     Route: 048
     Dates: start: 201208
  7. PRENATAL VITAMINS [Concomitant]
     Active Substance: VITAMINS
     Indication: IRON DEFICIENCY
     Route: 048
     Dates: start: 201102
  8. PRENATAL VITAMINS [Concomitant]
     Active Substance: VITAMINS
     Indication: FOLATE DEFICIENCY
     Route: 048
     Dates: start: 201102
  9. GABAPENTIN. [Concomitant]
     Active Substance: GABAPENTIN
     Indication: MIGRAINE
     Dosage: 1 CAPSULE IN MORNING AND UP TO??3 AT NIGHT
     Route: 048
     Dates: start: 201208

REACTIONS (1)
  - Fibromyalgia [Unknown]

NARRATIVE: CASE EVENT DATE: 201208
